FAERS Safety Report 21151322 (Version 3)
Quarter: 2023Q1

REPORT INFORMATION
  Report Type: Report from Study
  Country: US (occurrence: US)
  Receive Date: 20220730
  Receipt Date: 20230118
  Transmission Date: 20230417
  Serious: Yes (Other)
  Sender: FDA-Public Use
  Company Number: US-002147023-NVSC2022US171495

PATIENT
  Sex: Male

DRUGS (2)
  1. ENTRESTO [Suspect]
     Active Substance: SACUBITRIL\VALSARTAN
     Indication: Cardiac failure congestive
     Dosage: 24 MG, BID, 24-26 MG
     Route: 048
     Dates: start: 202106
  2. ENTRESTO [Suspect]
     Active Substance: SACUBITRIL\VALSARTAN
     Indication: Congestive cardiomyopathy
     Dosage: 0.5 DOSAGE FORM, BID
     Route: 048

REACTIONS (4)
  - Cardiac failure [Unknown]
  - Drug intolerance [Unknown]
  - Hypotension [Unknown]
  - Wrong technique in product usage process [Unknown]
